FAERS Safety Report 13411032 (Version 4)
Quarter: 2023Q4

REPORT INFORMATION
  Report Type: Spontaneous
  Country: US (occurrence: US)
  Receive Date: 20170406
  Receipt Date: 20231112
  Transmission Date: 20240110
  Serious: No
  Sender: FDA-Public Use
  Company Number: US-JNJFOC-20170304332

PATIENT
  Sex: Male

DRUGS (6)
  1. RISPERDAL [Suspect]
     Active Substance: RISPERIDONE
     Indication: Intermittent explosive disorder
     Route: 048
     Dates: start: 20071113
  2. RISPERDAL [Suspect]
     Active Substance: RISPERIDONE
     Indication: Autism spectrum disorder
     Route: 048
     Dates: start: 20080223, end: 20100113
  3. RISPERDAL [Suspect]
     Active Substance: RISPERIDONE
     Indication: Intellectual disability
  4. RISPERIDONE [Suspect]
     Active Substance: RISPERIDONE
     Indication: Intermittent explosive disorder
     Dosage: VARYING DOSES OF 1 MG, 2 MG, 3 MG
     Route: 048
     Dates: start: 20080709, end: 20141114
  5. RISPERIDONE [Suspect]
     Active Substance: RISPERIDONE
     Indication: Autism spectrum disorder
     Dosage: 6 TO 9 MG
     Route: 048
     Dates: start: 2000
  6. RISPERIDONE [Suspect]
     Active Substance: RISPERIDONE
     Indication: Intellectual disability

REACTIONS (2)
  - Emotional distress [Unknown]
  - Gynaecomastia [Unknown]
